FAERS Safety Report 11754145 (Version 2)
Quarter: 2016Q1

REPORT INFORMATION
  Report Type: Report from Study
  Country: BR (occurrence: BR)
  Receive Date: 20151119
  Receipt Date: 20160307
  Transmission Date: 20160525
  Serious: Yes (Other)
  Sender: FDA-Public Use
  Company Number: PHHY2015BR151016

PATIENT
  Sex: Female
  Weight: 67 kg

DRUGS (3)
  1. AFINITOR [Suspect]
     Active Substance: EVEROLIMUS
     Dosage: 5 MG, UNK
     Route: 048
  2. AFINITOR [Suspect]
     Active Substance: EVEROLIMUS
     Dosage: 10 MG, QD
     Route: 048
     Dates: start: 201504
  3. AFINITOR [Suspect]
     Active Substance: EVEROLIMUS
     Indication: BREAST CANCER
     Dosage: 10 MG, UNK
     Route: 048
     Dates: start: 201503

REACTIONS (8)
  - Malignant neoplasm progression [Unknown]
  - Aphthous ulcer [Unknown]
  - Chromatopsia [Not Recovered/Not Resolved]
  - Metastasis [Unknown]
  - Cataract [Unknown]
  - Visual impairment [Not Recovered/Not Resolved]
  - Metastases to bone [Unknown]
  - Body height decreased [Unknown]
